FAERS Safety Report 26133499 (Version 2)
Quarter: 2025Q4

REPORT INFORMATION
  Report Type: Report from Study
  Country: US (occurrence: US)
  Receive Date: 20251209
  Receipt Date: 20251211
  Transmission Date: 20260118
  Serious: Yes (Other)
  Sender: ACADIA PHARMACEUTICALS
  Company Number: US-ACADIA PHARMACEUTICALS INC.-ACA-2025-TRF-012929

PATIENT
  Sex: Female

DRUGS (1)
  1. DAYBUE [Suspect]
     Active Substance: TROFINETIDE
     Indication: Rett syndrome
     Dosage: 100 MILLILITER, BID
     Route: 048

REACTIONS (4)
  - Polycystic ovarian syndrome [Not Recovered/Not Resolved]
  - Gastrointestinal disorder [Unknown]
  - Ill-defined disorder [Unknown]
  - Overdose [Not Recovered/Not Resolved]
